FAERS Safety Report 6566177-7 (Version None)
Quarter: 2010Q1

REPORT INFORMATION
  Report Type: 
  Country: None (occurrence: None)
  Receive Date: 20100127
  Receipt Date: 20100118
  Transmission Date: 20100710
  Serious: Yes (Other)
  Sender: FDA-Public Use
  Company Number: A0839901A

PATIENT
  Age: 9 Year
  Sex: Female

DRUGS (1)
  1. CALCIUM CARBONATE [Suspect]
     Indication: DRUG USE FOR UNKNOWN INDICATION
     Dosage: .5 TABLET SINGLE DOSE ORAL
     Route: 048
     Dates: start: 20100117, end: 20100117

REACTIONS (4)
  - ANXIETY [None]
  - SWELLING FACE [None]
  - UNRESPONSIVE TO STIMULI [None]
  - URTICARIA [None]
